FAERS Safety Report 7351260-9 (Version None)
Quarter: 2011Q1

REPORT INFORMATION
  Report Type: 
  Country: None (occurrence: None)
  Receive Date: 20110314
  Receipt Date: 20110303
  Transmission Date: 20110831
  Serious: Yes (Hospitalization, Other)
  Sender: FDA-Public Use
  Company Number: US-CELGENEUS-163-21880-11020655

PATIENT
  Sex: Female

DRUGS (16)
  1. MEGACE [Concomitant]
     Dosage: 25 MILLIGRAM
     Route: 048
  2. LOPRESSOR [Concomitant]
     Dosage: 25 MILLIGRAM
     Route: 065
  3. ROPINIROLE [Concomitant]
     Dosage: .25 MILLIGRAM
     Route: 048
  4. ZOLOFT [Concomitant]
     Dosage: 100 MILLIGRAM
     Route: 065
  5. VITAMIN E [Concomitant]
     Dosage: 400 UNITS
     Route: 048
  6. TYLENOL [Concomitant]
     Dosage: 650 MILLIGRAM
     Route: 048
  7. IMDUR [Concomitant]
     Dosage: 30 MILLIGRAM
     Route: 048
  8. COUMADIN [Concomitant]
     Indication: PULMONARY EMBOLISM
     Route: 065
  9. PROTONIX [Concomitant]
     Dosage: 40 MILLIGRAM
     Route: 065
  10. INDOCIN [Concomitant]
     Dosage: 25 MILLIGRAM
     Route: 048
  11. MULTI-VITAMINS [Concomitant]
     Dosage: 1
     Route: 048
  12. SPIRIVA [Concomitant]
     Dosage: 1 PUFF
     Route: 065
  13. REVLIMID [Suspect]
     Dosage: 5 MILLIGRAM
     Route: 048
     Dates: start: 20060721, end: 20110202
  14. FOLIC ACID [Concomitant]
     Dosage: 1 MILLIGRAM
     Route: 048
  15. SYNTHROID [Concomitant]
     Dosage: .075 MILLIGRAM
     Route: 065
  16. PREDNISONE [Concomitant]
     Dosage: 40 MILLIGRAM
     Route: 065

REACTIONS (5)
  - TREMOR [None]
  - ENCEPHALOPATHY [None]
  - URINARY TRACT INFECTION [None]
  - PLATELET COUNT DECREASED [None]
  - CONFUSIONAL STATE [None]
